FAERS Safety Report 24292160 (Version 1)
Quarter: 2024Q3

REPORT INFORMATION
  Report Type: Spontaneous
  Country: US (occurrence: None)
  Receive Date: 20240906
  Receipt Date: 20240906
  Transmission Date: 20241017
  Serious: No
  Sender: DOMPE FARMACEUTICI
  Company Number: US-FARMAPROD-202307-2120

PATIENT
  Age: 66 Year
  Sex: Female
  Weight: 96.62 kg

DRUGS (22)
  1. OXERVATE [Suspect]
     Active Substance: CENEGERMIN-BKBJ
     Indication: Neurotrophic keratopathy
     Route: 047
     Dates: start: 20230705
  2. VITAMIN B COMPLEX [Concomitant]
     Active Substance: CYANOCOBALAMIN\DEXPANTHENOL\NIACINAMIDE\PYRIDOXINE HYDROCHLORIDE\RIBOFLAVIN 5^-PHOSPHATE SODIUM\THIA
  3. FISH OIL [Concomitant]
     Active Substance: FISH OIL
  4. VITAMINS [Concomitant]
     Active Substance: VITAMINS
  5. MAGNESIUM [Concomitant]
     Active Substance: MAGNESIUM
  6. LORATADINE [Concomitant]
     Active Substance: LORATADINE
  7. FLAXSEED [Concomitant]
     Active Substance: FLAX SEED
     Dosage: 1300-670 MG
  8. FUROSEMIDE [Concomitant]
     Active Substance: FUROSEMIDE
  9. VITAMIN D3 [Concomitant]
     Active Substance: CHOLECALCIFEROL
  10. COMBIGAN [Concomitant]
     Active Substance: BRIMONIDINE TARTRATE\TIMOLOL MALEATE
     Dosage: 0.2%-0.5%
  11. FAMOTIDINE [Concomitant]
     Active Substance: FAMOTIDINE
  12. TACROLIMUS [Concomitant]
     Active Substance: TACROLIMUS
  13. ASPIRIN [Concomitant]
     Active Substance: ASPIRIN
  14. FLUOROMETHOLONE [Concomitant]
     Active Substance: FLUOROMETHOLONE
  15. METOPROLOL TARTRATE [Concomitant]
     Active Substance: METOPROLOL TARTRATE
  16. HYDRALAZINE HCL [Concomitant]
     Active Substance: HYDRALAZINE HYDROCHLORIDE
  17. MOXIFLOXACIN [Concomitant]
     Active Substance: MOXIFLOXACIN
  18. BENZONATATE [Concomitant]
     Active Substance: BENZONATATE
  19. CALCITRIOL [Concomitant]
     Active Substance: CALCITRIOL
  20. MYFORTIC [Concomitant]
     Active Substance: MYCOPHENOLATE SODIUM
  21. ATORVASTATIN CALCIUM [Concomitant]
     Active Substance: ATORVASTATIN CALCIUM
  22. PREDNISONE [Concomitant]
     Active Substance: PREDNISONE

REACTIONS (2)
  - Eye discharge [Unknown]
  - Eye infection viral [Unknown]

NARRATIVE: CASE EVENT DATE: 20230701
